FAERS Safety Report 19230685 (Version 1)
Quarter: 2021Q2

REPORT INFORMATION
  Report Type: Spontaneous
  Country: US (occurrence: US)
  Receive Date: 20210507
  Receipt Date: 20210507
  Transmission Date: 20210717
  Serious: No
  Sender: FDA-Public Use
  Company Number: None

PATIENT
  Sex: Female

DRUGS (2)
  1. CAPECITABINE. [Suspect]
     Active Substance: CAPECITABINE
     Indication: BREAST CANCER FEMALE
     Dosage: ?          OTHER FREQUENCY:3 QAM/4 QPM;?
     Route: 048
     Dates: start: 20210315
  2. TUKYSA [Concomitant]
     Active Substance: TUCATINIB
     Dates: start: 20210315

REACTIONS (1)
  - Hospitalisation [None]
